FAERS Safety Report 10448247 (Version 1)
Quarter: 2014Q3

REPORT INFORMATION
  Report Type: Spontaneous
  Country: US (occurrence: US)
  Receive Date: 20140911
  Receipt Date: 20140911
  Transmission Date: 20150326
  Serious: Yes (Other)
  Sender: FDA-Public Use
  Company Number: US-ASTRAZENECA-2014SE67740

PATIENT
  Age: 47 Year
  Sex: Female
  Weight: 79.4 kg

DRUGS (1)
  1. NEXIUM 24HR [Suspect]
     Active Substance: ESOMEPRAZOLE MAGNESIUM
     Indication: GASTROOESOPHAGEAL REFLUX DISEASE
     Route: 048
     Dates: start: 2014, end: 20140831

REACTIONS (17)
  - Muscle twitching [Not Recovered/Not Resolved]
  - Myocardial infarction [Unknown]
  - Loss of consciousness [Unknown]
  - Ulcer [Not Recovered/Not Resolved]
  - General physical health deterioration [Recovering/Resolving]
  - Fear of death [Unknown]
  - Dilatation ventricular [Unknown]
  - Visual impairment [Recovering/Resolving]
  - Arthralgia [Recovering/Resolving]
  - Joint swelling [Recovering/Resolving]
  - Palpitations [Unknown]
  - Intentional product misuse [Unknown]
  - Blood magnesium decreased [Unknown]
  - Bone pain [Recovering/Resolving]
  - Muscle spasms [Not Recovered/Not Resolved]
  - Bone disorder [Recovering/Resolving]
  - Abdominal pain upper [Not Recovered/Not Resolved]

NARRATIVE: CASE EVENT DATE: 201408
